FAERS Safety Report 16322091 (Version 2)
Quarter: 2019Q3

REPORT INFORMATION
  Report Type: Spontaneous
  Country: US (occurrence: US)
  Receive Date: 20190516
  Receipt Date: 20190926
  Transmission Date: 20191004
  Serious: Yes (Hospitalization)
  Sender: FDA-Public Use
  Company Number: US-TEVA-2019-US-1049636

PATIENT
  Age: 48 Year
  Sex: Female

DRUGS (6)
  1. COLECALCIFEROL [Suspect]
     Active Substance: CHOLECALCIFEROL
     Route: 065
  2. CALCITRIOL. [Suspect]
     Active Substance: CALCITRIOL
     Indication: HYPOCALCAEMIA
     Route: 048
  3. CALCIUM-ACETATE [Suspect]
     Active Substance: CALCIUM ACETATE
     Route: 065
  4. CALCIUM/COLECALCIFEROL [Suspect]
     Active Substance: CALCIUM\CHOLECALCIFEROL
     Route: 065
  5. HYDROCHLOROTHIAZIDE. [Suspect]
     Active Substance: HYDROCHLOROTHIAZIDE
     Route: 065
  6. CALCIUM CARBONATE. [Suspect]
     Active Substance: CALCIUM CARBONATE
     Indication: HYPOCALCAEMIA
     Dosage: THREE TIMES A DAY
     Route: 048

REACTIONS (15)
  - Respiratory alkalosis [Unknown]
  - Vomiting [Unknown]
  - Hypercalcaemia [Unknown]
  - Tachycardia [Unknown]
  - Mental status changes [Unknown]
  - Metabolic acidosis [Unknown]
  - Abdominal tenderness [Unknown]
  - Leukocytosis [Unknown]
  - Asthenia [Unknown]
  - Pancreatitis acute [Recovered/Resolved]
  - Tachypnoea [Unknown]
  - Diarrhoea [Unknown]
  - Renal tubular necrosis [Recovered/Resolved]
  - Hypotension [Unknown]
  - Decreased appetite [Unknown]
